FAERS Safety Report 4292759-1 (Version None)
Quarter: 2004Q1

REPORT INFORMATION
  Report Type: 
  Country: None (occurrence: None)
  Receive Date: 20040210
  Receipt Date: 20031205
  Transmission Date: 20041129
  Serious: Yes (Other)
  Sender: FDA-Public Use
  Company Number: 2004PK00206

PATIENT
  Age: 20 Year
  Sex: Male

DRUGS (4)
  1. SEROQUEL [Suspect]
     Indication: SCHIZOPHRENIA
     Dosage: 400 MG DAILY PO
     Route: 048
  2. ZYPREXA [Concomitant]
  3. DIPIPERON [Concomitant]
  4. TAFIL [Concomitant]

REACTIONS (1)
  - LEUKOPENIA [None]
